FAERS Safety Report 4285829-5 (Version None)
Quarter: 2004Q1

REPORT INFORMATION
  Report Type: 
  Country: None (occurrence: None)
  Receive Date: 20040203
  Receipt Date: 20031010
  Transmission Date: 20041129
  Serious: Yes (Hospitalization, Other)
  Sender: FDA-Public Use
  Company Number: KII-2003-0006983

PATIENT
  Age: 83 Year
  Sex: Female

DRUGS (7)
  1. MORPHINE SULFATE [Suspect]
     Indication: PAIN
     Dosage: ORAL
     Route: 048
  2. OXYCODONE HCL [Suspect]
     Indication: PAIN
     Dosage: ORAL
     Route: 048
  3. ACETAMINOPHEN [Suspect]
     Indication: DRUG USE FOR UNKNOWN INDICATION
  4. ACE INHIBITOR NOS [Concomitant]
  5. LEUKOTRIENE ANTAGONIST / INHIBITOR [Concomitant]
  6. ANTIEMETICS AND ANTINAUSEANTS [Concomitant]
  7. INHALER [Concomitant]

REACTIONS (13)
  - AGITATION [None]
  - APNOEIC ATTACK [None]
  - BLOOD SODIUM DECREASED [None]
  - BUNDLE BRANCH BLOCK [None]
  - DISORIENTATION [None]
  - HYPERSOMNIA [None]
  - HYPERTENSION [None]
  - INTENTIONAL OVERDOSE [None]
  - INTENTIONAL SELF-INJURY [None]
  - LETHARGY [None]
  - SINUS TACHYCARDIA [None]
  - SOMNOLENCE [None]
  - SUICIDAL IDEATION [None]
